FAERS Safety Report 7885239-5 (Version None)
Quarter: 2011Q4

REPORT INFORMATION
  Report Type: 
  Country: None (occurrence: None)
  Receive Date: 20111102
  Receipt Date: 20111031
  Transmission Date: 20120403
  Serious: Yes (Death, Disabling, Other)
  Sender: FDA-Public Use
  Company Number: PHHY2010JP71562

PATIENT
  Sex: Male

DRUGS (8)
  1. ISOSORBIDE DINITRATE [Concomitant]
     Indication: MYOCARDIAL INFARCTION
     Dosage: 25 MG
     Route: 042
  2. AFINITOR [Suspect]
     Dosage: 10 MG, DAILY
     Route: 048
     Dates: start: 20100917, end: 20101008
  3. TAMSULOSIN HCL [Concomitant]
     Indication: BENIGN PROSTATIC HYPERPLASIA
     Dosage: 0.2 MG
     Route: 048
     Dates: start: 20100706
  4. AFINITOR [Suspect]
     Indication: METASTATIC RENAL CELL CARCINOMA
     Dosage: 10 MG, DAILY
     Route: 048
     Dates: start: 20100706, end: 20100903
  5. LASIX [Concomitant]
     Indication: MYOCARDIAL INFARCTION
     Dosage: 20 MG
     Route: 042
  6. NORVASC [Suspect]
     Indication: HYPERTENSION
     Dosage: 1.5 MG
     Route: 048
     Dates: start: 20100706, end: 20100809
  7. DOPAMINE HCL [Concomitant]
     Indication: MYOCARDIAL INFARCTION
     Dosage: 100 ML
     Route: 042
     Dates: start: 20101020
  8. ALBUMIN (HUMAN) [Concomitant]
     Indication: MYOCARDIAL INFARCTION
     Dosage: 12.5 G
     Route: 042
     Dates: start: 20101020

REACTIONS (6)
  - NEOPLASM PROGRESSION [None]
  - NEOPLASM MALIGNANT [None]
  - MYOCARDIAL INFARCTION [None]
  - ALANINE AMINOTRANSFERASE INCREASED [None]
  - ASPARTATE AMINOTRANSFERASE INCREASED [None]
  - METASTASES TO ABDOMINAL WALL [None]
